FAERS Safety Report 10934623 (Version 1)
Quarter: 2015Q1

REPORT INFORMATION
  Report Type: Spontaneous
  Country: GB (occurrence: GB)
  Receive Date: 20150320
  Receipt Date: 20150320
  Transmission Date: 20150721
  Serious: Yes (Other)
  Sender: FDA-Public Use
  Company Number: GB-PFIZER INC-2015092086

PATIENT
  Age: 62 Year
  Sex: Male
  Weight: 96 kg

DRUGS (2)
  1. IBUPROFEN. [Suspect]
     Active Substance: IBUPROFEN
     Dosage: UNK
     Dates: start: 20150303
  2. PARACETAMOL [Concomitant]
     Active Substance: ACETAMINOPHEN
     Dosage: 2 DF, 4X/DAY
     Dates: start: 20150205, end: 20150303

REACTIONS (2)
  - Hypersensitivity [Unknown]
  - Peptic ulcer [Unknown]

NARRATIVE: CASE EVENT DATE: 20150303
